FAERS Safety Report 8759682 (Version 1)
Quarter: 2012Q4

REPORT INFORMATION
  Report Type: 
  Country: FR (occurrence: FR)
  Receive Date: 20120828
  Receipt Date: 20120828
  Transmission Date: 20130627
  Serious: Yes (Life-Threatening, Hospitalization)
  Sender: FDA-Public Use
  Company Number: FR-VERTEX PHARMACEUTICAL INC.-000000000000000292

PATIENT
  Age: 68 Year
  Sex: Female
  Weight: 66.5 kg

DRUGS (18)
  1. INCIVO [Suspect]
     Indication: HEPATITIS C
     Dosage: Dosage Form: Tablet
     Route: 048
     Dates: start: 20111017, end: 20111231
  2. PEGASYS [Suspect]
     Indication: HEPATITIS C
     Dosage: 180 ?g, UNK
     Route: 058
     Dates: start: 20111017, end: 20120105
  3. COPEGUS [Suspect]
     Indication: HEPATITIS C
     Dosage: 1000 mg, UNK
     Dates: start: 20111017, end: 20120105
  4. NEORECORMON [Concomitant]
     Indication: ANAEMIA
     Dosage: 30000 IU, UNK
     Dates: start: 20111205, end: 20120106
  5. TILDIEM [Concomitant]
     Indication: PROPHYLAXIS
     Dosage: 60 mg, UNK
  6. TILDIEM [Concomitant]
     Indication: HYPERTENSION
     Dosage: 60 mg, UNK
     Route: 048
     Dates: start: 2002
  7. TILDIEM [Concomitant]
     Dosage: 200 mg, UNK
  8. TILDIEM [Concomitant]
     Dosage: UNK
     Route: 048
  9. TILDIEM [Concomitant]
     Dosage: 60 mg, UNK
     Route: 048
  10. TILDIEM [Concomitant]
     Dosage: 200 mg, UNK
     Route: 048
  11. TILDIEM [Concomitant]
     Route: 048
  12. TILDIEM [Concomitant]
     Route: 048
  13. ARIMIDEX [Concomitant]
     Indication: BREAST CANCER
     Dosage: 2 UNK, UNK
     Route: 048
  14. EFFEXOR [Concomitant]
     Indication: DEPRESSION
     Dosage: 75 mg, UNK
  15. EFFEXOR [Concomitant]
     Dosage: 75 mg, UNK
     Route: 048
     Dates: start: 2002
  16. EFFEXOR [Concomitant]
     Dosage: UNK
     Route: 048
  17. NOCTAMIDE [Concomitant]
     Indication: INSOMNIA
     Dosage: 2 mg, UNK
     Dates: start: 2003
  18. UVEDOSE [Concomitant]
     Indication: PRODUCT USED FOR UNKNOWN INDICATION
     Dosage: 1 DF, UNK

REACTIONS (3)
  - Drug reaction with eosinophilia and systemic symptoms [Recovered/Resolved]
  - Anaemia [Unknown]
  - Drug eruption [Recovered/Resolved]
